FAERS Safety Report 11596288 (Version 2)
Quarter: 2015Q4

REPORT INFORMATION
  Report Type: Spontaneous
  Country: US (occurrence: US)
  Receive Date: 20151006
  Receipt Date: 20151021
  Transmission Date: 20160304
  Serious: Yes (Hospitalization, Other)
  Sender: FDA-Public Use
  Company Number: US-PFIZER INC-2015328032

PATIENT
  Age: 41 Year
  Sex: Male
  Weight: 84 kg

DRUGS (8)
  1. XANAX XR [Suspect]
     Active Substance: ALPRAZOLAM
     Indication: PANIC ATTACK
     Dosage: 1 MG, 3X/DAY
     Route: 048
     Dates: start: 2008
  2. XANAX XR [Suspect]
     Active Substance: ALPRAZOLAM
     Indication: ANXIETY
  3. CYANOCOBALAMIN. [Concomitant]
     Active Substance: CYANOCOBALAMIN
     Dosage: UNK
  4. LEVOTHYROXINE. [Concomitant]
     Active Substance: LEVOTHYROXINE
     Dosage: 25 ?G, 1X/DAY
     Route: 048
  5. XANAX [Suspect]
     Active Substance: ALPRAZOLAM
     Indication: PANIC ATTACK
  6. OMEPRAZOLE. [Concomitant]
     Active Substance: OMEPRAZOLE
     Dosage: 2 DF, DAILY
     Route: 048
  7. VITAMIN B [Concomitant]
     Active Substance: VITAMIN B
     Dosage: 1000 MG, EVERY OTHER WEEK
  8. XANAX [Suspect]
     Active Substance: ALPRAZOLAM
     Indication: ANXIETY
     Dosage: 0.5 MG, 4X/DAY
     Route: 048
     Dates: start: 2006

REACTIONS (11)
  - Drug effect incomplete [Unknown]
  - Fibromyalgia [Unknown]
  - Dislocation of vertebra [Unknown]
  - Pain [Unknown]
  - Intervertebral disc disorder [Unknown]
  - Activities of daily living impaired [Unknown]
  - Intervertebral disc displacement [Unknown]
  - Condition aggravated [Unknown]
  - Feeling abnormal [Unknown]
  - Fatigue [Not Recovered/Not Resolved]
  - Anxiety [Unknown]
